FAERS Safety Report 4945714-X (Version None)
Quarter: 2006Q1

REPORT INFORMATION
  Report Type: 
  Country: None (occurrence: None)
  Receive Date: 20060117
  Receipt Date: 20050428
  Transmission Date: 20060701
  Serious: Yes (Other)
  Sender: FDA-Public Use
  Company Number: A03200501301

PATIENT
  Age: 71 Year
  Sex: Male
  Weight: 76.19 kg

DRUGS (3)
  1. PLAVIX [Suspect]
     Indication: CORONARY ARTERIAL STENT INSERTION
     Dosage: 75 MG QD - ORAL
     Route: 048
     Dates: start: 20041001, end: 20050301
  2. PRAVASTATIN SODIUM [Concomitant]
  3. METOPROLOL TARTRATE [Concomitant]

REACTIONS (2)
  - ANAEMIA [None]
  - WEIGHT DECREASED [None]
